FAERS Safety Report 11867872 (Version 2)
Quarter: 2016Q1

REPORT INFORMATION
  Report Type: Spontaneous
  Country: JP (occurrence: JP)
  Receive Date: 20151224
  Receipt Date: 20160108
  Transmission Date: 20160526
  Serious: Yes (Other)
  Sender: FDA-Public Use
  Company Number: JP-009507513-1512JPN010647

PATIENT
  Age: 65 Year
  Sex: Female

DRUGS (4)
  1. DEXAMETHASONE. [Suspect]
     Active Substance: DEXAMETHASONE
     Indication: AMYLOIDOSIS
     Dosage: 16.5 MG/KG, ON DAYS 1,4,8 AND 11
     Route: 065
  2. DEXAMETHASONE. [Suspect]
     Active Substance: DEXAMETHASONE
     Dosage: 16.5 MG/KG,
     Route: 065
  3. BORTEZOMIB [Suspect]
     Active Substance: BORTEZOMIB
     Dosage: 2.1 MG/KG, QW
     Route: 065
  4. BORTEZOMIB [Suspect]
     Active Substance: BORTEZOMIB
     Indication: AMYLOIDOSIS
     Dosage: 1.6 MG/KG, Q4D ON DAYS 1,4,8 AND 11
     Route: 065

REACTIONS (4)
  - Rash [Recovered/Resolved]
  - Diarrhoea [Recovered/Resolved]
  - Thrombocytopenia [Recovered/Resolved]
  - Anaemia [Recovered/Resolved]
